FAERS Safety Report 7775041-7 (Version None)
Quarter: 2011Q3

REPORT INFORMATION
  Report Type: 
  Country: None (occurrence: None)
  Receive Date: 20110923
  Receipt Date: 20110912
  Transmission Date: 20111222
  Serious: Yes (Other)
  Sender: FDA-Public Use
  Company Number: CH-ELI_LILLY_AND_COMPANY-CH201108009422

PATIENT
  Sex: Female

DRUGS (16)
  1. CANNABIS [Concomitant]
  2. CANNABIS [Concomitant]
  3. FOLVITE [Concomitant]
     Dosage: 5 MG, QD
  4. FLUOXETINE HYDROCHLORIDE [Suspect]
     Dosage: 20 MG, QD
     Dates: end: 20110703
  5. FLUOXETINE HYDROCHLORIDE [Suspect]
     Dosage: 10 MG, QD
     Dates: start: 20110703
  6. NICOTINE [Concomitant]
  7. ALCOHOL [Concomitant]
  8. LAMICTAL [Concomitant]
     Dosage: 150 MG, QD
     Dates: start: 20110704
  9. LAMICTAL [Concomitant]
     Indication: BIPOLAR DISORDER
     Dosage: 100 MG, QD
     Dates: start: 20100915, end: 20110703
  10. FLUOXETINE HYDROCHLORIDE [Suspect]
     Dosage: 20 MG, QD
     Dates: end: 20110703
  11. NICOTINE [Concomitant]
  12. LAMICTAL [Concomitant]
     Dosage: 100 MG, QD
     Dates: start: 20100915, end: 20110703
  13. LAMICTAL [Concomitant]
     Dosage: 150 MG, QD
     Dates: start: 20110704
  14. FLUOXETINE HYDROCHLORIDE [Suspect]
     Dosage: 10 MG, QD
     Dates: start: 20110703
  15. FOLVITE [Concomitant]
     Dosage: 5 MG, QD
  16. ALCOHOL [Concomitant]

REACTIONS (3)
  - MATERNAL EXPOSURE DURING PREGNANCY [None]
  - FOETAL GROWTH RESTRICTION [None]
  - EXPOSURE DURING BREAST FEEDING [None]
